FAERS Safety Report 18374599 (Version 2)
Quarter: 2020Q4

REPORT INFORMATION
  Report Type: Spontaneous
  Country: DE (occurrence: DE)
  Receive Date: 20201013
  Receipt Date: 20201118
  Transmission Date: 20210114
  Serious: Yes (Other)
  Sender: FDA-Public Use
  Company Number: DE-009507513-2010DEU004061

PATIENT
  Age: 59 Year
  Sex: Female
  Weight: 78 kg

DRUGS (4)
  1. POTASSIUM CHLORIDE. [Concomitant]
     Active Substance: POTASSIUM CHLORIDE
     Indication: HYPOKALAEMIA
     Dosage: 3 ML, UNKNOWN FREQ. (VIA CENTRAL VENOUS CATHETER)
     Route: 042
     Dates: end: 20200927
  2. ENOXAPARIN SODIUM. [Concomitant]
     Active Substance: ENOXAPARIN SODIUM
     Indication: THROMBOSIS
     Dosage: UNK UNK, UNKNOWN FREQ
     Route: 065
  3. FIDAXOMICIN [Suspect]
     Active Substance: FIDAXOMICIN
     Indication: CLOSTRIDIUM DIFFICILE INFECTION
     Dosage: 200 MILLIGRAM, Q12H (ALSO REPORTED AS TWICE DAILY)
     Route: 065
     Dates: start: 20200925
  4. FIDAXOMICIN [Suspect]
     Active Substance: FIDAXOMICIN
     Indication: CLOSTRIDIUM DIFFICILE COLITIS
     Dosage: 200 MILLIGRAM, Q12H
     Route: 048
     Dates: start: 20200926, end: 20200928

REACTIONS (4)
  - Myasthenia gravis [Unknown]
  - Mastication disorder [Recovered/Resolved]
  - Condition aggravated [Recovered/Resolved]
  - Feeling abnormal [Unknown]

NARRATIVE: CASE EVENT DATE: 20200925
